FAERS Safety Report 21370312 (Version 1)
Quarter: 2022Q3

REPORT INFORMATION
  Report Type: Spontaneous
  Country: US (occurrence: US)
  Receive Date: 20220923
  Receipt Date: 20220923
  Transmission Date: 20221026
  Serious: No
  Sender: FDA-Public Use
  Company Number: US-AMNEAL PHARMACEUTICALS-2021-AMRX-05137

PATIENT
  Age: 62 Year
  Sex: Female
  Weight: 79.365 kg

DRUGS (1)
  1. BUDESONIDE [Suspect]
     Active Substance: BUDESONIDE
     Indication: Post procedural inflammation
     Dosage: 1 AMPULE, 2X/DAY
     Dates: start: 20211215, end: 20211218

REACTIONS (6)
  - Nasal congestion [Recovered/Resolved]
  - Nasal inflammation [Recovered/Resolved]
  - Flushing [Recovered/Resolved]
  - Dizziness [Recovered/Resolved]
  - Swelling face [Recovered/Resolved]
  - Inflammation [Recovered/Resolved]

NARRATIVE: CASE EVENT DATE: 20211217
